FAERS Safety Report 4815680-6 (Version None)
Quarter: 2005Q4

REPORT INFORMATION
  Report Type: 
  Country: None (occurrence: None)
  Receive Date: 20051027
  Receipt Date: 20051012
  Transmission Date: 20060501
  Serious: Yes (Life-Threatening, Hospitalization)
  Sender: FDA-Public Use
  Company Number: DSA_27284_2005

PATIENT
  Age: 42 Year
  Sex: Female

DRUGS (4)
  1. BI-TILDIEM [Suspect]
     Dosage: 240 MG Q DAY PO
     Route: 048
     Dates: end: 20050729
  2. CARDENSIEL [Concomitant]
  3. FOZITEC [Concomitant]
  4. CEFPODOXINE [Concomitant]

REACTIONS (12)
  - ACIDOSIS [None]
  - BLOOD CREATININE INCREASED [None]
  - BRONCHOPNEUMOPATHY [None]
  - DIARRHOEA [None]
  - DRUG INEFFECTIVE [None]
  - HAEMODIALYSIS [None]
  - HYPERHIDROSIS [None]
  - HYPERKALAEMIA [None]
  - LOSS OF CONSCIOUSNESS [None]
  - NAUSEA [None]
  - PALLOR [None]
  - SINOATRIAL BLOCK [None]
